FAERS Safety Report 9957000 (Version 1)
Quarter: 2014Q1

REPORT INFORMATION
  Report Type: Report from Study
  Country: US (occurrence: US)
  Receive Date: 20140304
  Receipt Date: 20140304
  Transmission Date: 20141002
  Serious: No
  Sender: FDA-Public Use
  Company Number: US-ABBVIE-13P-163-1097416-00

PATIENT
  Age: 54 Year
  Sex: Female

DRUGS (4)
  1. HUMIRA [Suspect]
     Indication: COLITIS ULCERATIVE
     Dates: start: 20130526, end: 20130526
  2. HUMIRA [Suspect]
     Dates: start: 20130527
  3. PROBIOTIC [Concomitant]
     Indication: COLITIS ULCERATIVE
     Dosage: DAILY
  4. SLIDING SCALE HUMALOG [Concomitant]
     Indication: DIABETES MELLITUS
     Dosage: 75/25 INSULIN

REACTIONS (4)
  - Device malfunction [Unknown]
  - Device malfunction [Unknown]
  - Nausea [Not Recovered/Not Resolved]
  - Vomiting [Not Recovered/Not Resolved]
